FAERS Safety Report 18799457 (Version 1)
Quarter: 2021Q1

REPORT INFORMATION
  Report Type: Spontaneous
  Country: CN (occurrence: CN)
  Receive Date: 20210128
  Receipt Date: 20210128
  Transmission Date: 20210419
  Serious: Yes (Life-Threatening, Hospitalization)
  Sender: FDA-Public Use
  Company Number: CN-LUPIN PHARMACEUTICALS INC.-2021-00755

PATIENT
  Age: 67 Year
  Sex: Female
  Weight: 50 kg

DRUGS (9)
  1. VANCOMYCIN [Concomitant]
     Active Substance: VANCOMYCIN
     Indication: ESCHERICHIA INFECTION
  2. HYDROCORTISONE. [Suspect]
     Active Substance: HYDROCORTISONE
     Indication: SEPTIC SHOCK
     Dosage: UNK
     Route: 065
  3. VANCOMYCIN [Concomitant]
     Active Substance: VANCOMYCIN
     Indication: ANTI-INFECTIVE THERAPY
     Dosage: UNK
     Route: 065
  4. IMIPENEM AND CILASTATIN SODIUM [Suspect]
     Active Substance: CILASTATIN SODIUM\IMIPENEM
     Indication: SEPTIC SHOCK
  5. EPINEPHRINE. [Suspect]
     Active Substance: EPINEPHRINE
     Indication: SEPTIC SHOCK
     Dosage: 1 MILLIGRAM/KILOGRAM,  1.0 MG/KG/MIN
     Route: 065
  6. NOREPINEPHRINE. [Suspect]
     Active Substance: NOREPINEPHRINE
     Indication: SEPTIC SHOCK
     Dosage: 1.5 MILLIGRAM/KILOGRAM,  1.5 MG/KG/MIN
     Route: 065
  7. NOREPINEPHRINE. [Suspect]
     Active Substance: NOREPINEPHRINE
     Dosage: 1 MILLIGRAM/KILOGRAM
     Route: 065
  8. IMIPENEM AND CILASTATIN SODIUM [Suspect]
     Active Substance: CILASTATIN SODIUM\IMIPENEM
     Indication: ESCHERICHIA INFECTION
  9. IMIPENEM AND CILASTATIN SODIUM [Suspect]
     Active Substance: CILASTATIN SODIUM\IMIPENEM
     Indication: ANTI-INFECTIVE THERAPY
     Dosage: 1 GRAM, QID, 1G EVERY 6 HOURS
     Route: 065

REACTIONS (1)
  - Therapy non-responder [Unknown]
